FAERS Safety Report 6791332-0 (Version None)
Quarter: 2010Q2

REPORT INFORMATION
  Report Type: 
  Country: None (occurrence: None)
  Receive Date: 20100624
  Receipt Date: 20100608
  Transmission Date: 20101027
  Serious: Yes (Death, Other)
  Sender: FDA-Public Use
  Company Number: US-BAYER-201025556NA

PATIENT
  Age: 61 Year
  Sex: Male
  Weight: 76 kg

DRUGS (16)
  1. MAGNEVIST [Suspect]
     Indication: NUCLEAR MAGNETIC RESONANCE IMAGING BRAIN
     Dates: start: 20060317, end: 20060317
  2. OPTIMARK [Suspect]
     Indication: ANGIOGRAM
     Dosage: UNIT DOSE: 60 ML
     Dates: start: 20041011, end: 20041011
  3. OPTIMARK [Suspect]
     Dosage: UNIT DOSE: 30 ML
     Dates: start: 20041011, end: 20041011
  4. CLARITHROMYCIN 500 [Concomitant]
  5. MINOCYCLINE HCL [Concomitant]
     Route: 048
  6. LISINOPRIL [Concomitant]
  7. RENAGEL [Concomitant]
     Dosage: 800 MG, 5 TIMES A DAY
  8. ZANTAC [Concomitant]
  9. NEXIUM [Concomitant]
  10. ASPIRIN [Concomitant]
  11. ZEMPLAR [Concomitant]
     Dosage: 12 MG WITH EACH DIALYSIS
     Route: 042
  12. NEURONTIN [Concomitant]
  13. KLONOPIN [Concomitant]
  14. HEPARIN [Concomitant]
  15. ADENOSINE [Concomitant]
     Indication: CARDIAC STRESS TEST
     Dosage: 20ML-30MG-10ML
     Dates: start: 20041011, end: 20041011
  16. OMNIPAQUE 300 [Concomitant]
     Indication: COMPUTERISED TOMOGRAM THORAX
     Dosage: 100 CC
     Dates: start: 20050829, end: 20050829

REACTIONS (12)
  - EXFOLIATIVE RASH [None]
  - EXTREMITY CONTRACTURE [None]
  - GAIT DISTURBANCE [None]
  - JOINT RANGE OF MOTION DECREASED [None]
  - JOINT SWELLING [None]
  - NEPHROGENIC SYSTEMIC FIBROSIS [None]
  - OEDEMA [None]
  - OEDEMA PERIPHERAL [None]
  - PIGMENTATION DISORDER [None]
  - SKIN HYPERTROPHY [None]
  - SKIN INDURATION [None]
  - SKIN TIGHTNESS [None]
